FAERS Safety Report 6781493-1 (Version None)
Quarter: 2010Q2

REPORT INFORMATION
  Report Type: 
  Country: None (occurrence: None)
  Receive Date: 20100621
  Receipt Date: 20100609
  Transmission Date: 20101027
  Serious: Yes (Life-Threatening)
  Sender: FDA-Public Use
  Company Number: FR-PFIZER INC-2010072184

PATIENT
  Age: 43 Year
  Sex: Female

DRUGS (9)
  1. CYTARABINE [Suspect]
     Indication: ACUTE LYMPHOCYTIC LEUKAEMIA
     Dosage: TOTAL DOSE OF 40 MG ON DAY 1 AND DAY 8
     Route: 037
  2. DEPO-MEDROL [Suspect]
     Indication: ACUTE LYMPHOCYTIC LEUKAEMIA
     Dosage: TOTAL DOSE OF 40 MG ON D1 AND D8
     Route: 037
  3. KIDROLASE [Suspect]
     Indication: ACUTE MYELOID LEUKAEMIA
     Dosage: 6000 IU/M2 ON DAY 8
     Route: 042
     Dates: start: 20091219, end: 20091219
  4. VINCRISTINE [Suspect]
     Indication: ACUTE LYMPHOCYTIC LEUKAEMIA
     Dosage: 2 MG ON D1, D8 THEN D19, D21
     Route: 042
  5. CERUBIDIN [Suspect]
     Indication: ACUTE LYMPHOCYTIC LEUKAEMIA
     Dosage: 50 MG/M2 ON D1, D2 AND D3
     Route: 042
  6. CERUBIDIN [Suspect]
     Dosage: 30 MG/M2 ON D15 AND D16
     Route: 042
  7. ENDOXAN [Suspect]
     Indication: ACUTE LYMPHOCYTIC LEUKAEMIA
     Dosage: 750 MG/M2 ON D1
     Route: 042
  8. ENDOXAN [Suspect]
     Dosage: 300 MG/M2 ON D15, D16 AND D17
     Route: 042
  9. METHOTREXATE MERCK [Suspect]
     Indication: ACUTE LYMPHOCYTIC LEUKAEMIA
     Dosage: TOTAL DOSE OF 15 MG ON D1 AND D8
     Route: 037

REACTIONS (2)
  - HEMIPLEGIA [None]
  - THROMBOPHLEBITIS [None]
